FAERS Safety Report 8989639 (Version 1)
Quarter: 2012Q4

REPORT INFORMATION
  Report Type: 
  Country: DE (occurrence: DE)
  Receive Date: 20121228
  Receipt Date: 20121228
  Transmission Date: 20130627
  Serious: Yes (Congenital Anomaly, Other)
  Sender: FDA-Public Use
  Company Number: DE-ACCORD-015732

PATIENT
  Sex: Male
  Weight: 1.68 kg

DRUGS (2)
  1. DOCETAXEL [Suspect]
     Dosage: Mother took docetaxel.
     Route: 064
  2. CYCLOPHOSPHAMIDE [Suspect]
     Route: 064

REACTIONS (4)
  - Hypoglycaemia [Unknown]
  - Foetal growth restriction [Unknown]
  - Convulsion [Unknown]
  - Thrombocytopenia [Unknown]
